FAERS Safety Report 10103099 (Version 6)
Quarter: 2015Q3

REPORT INFORMATION
  Report Type: Spontaneous
  Country: US (occurrence: US)
  Receive Date: 20140424
  Receipt Date: 20150714
  Transmission Date: 20151125
  Serious: Yes (Other)
  Sender: FDA-Public Use
  Company Number: US-GLAXOSMITHKLINE-A1069781A

PATIENT
  Age: 71 Year
  Sex: Male
  Weight: 81.63 kg

DRUGS (42)
  1. CALCIUM PLUS D [Concomitant]
     Active Substance: CALCIUM\VITAMIN D
  2. AVODART [Suspect]
     Active Substance: DUTASTERIDE
     Indication: RENAL DISORDER
     Dosage: 0.5 MG, QD
     Route: 048
     Dates: start: 20140408
  3. VITAMIN B12 [Concomitant]
     Active Substance: CYANOCOBALAMIN
  4. FENOFIBRATE. [Concomitant]
     Active Substance: FENOFIBRATE
  5. VICODIN [Concomitant]
     Active Substance: ACETAMINOPHEN\HYDROCODONE BITARTRATE
  6. FLOMAX [Concomitant]
     Active Substance: TAMSULOSIN HYDROCHLORIDE
  7. ACTOPLUS MET [Concomitant]
     Active Substance: METFORMIN HYDROCHLORIDE\PIOGLITAZONE HYDROCHLORIDE
  8. FISH OIL [Concomitant]
     Active Substance: FISH OIL
  9. NITROGLYCERIN. [Concomitant]
     Active Substance: NITROGLYCERIN
  10. CEFDINIR. [Concomitant]
     Active Substance: CEFDINIR
  11. LORAZEPAM. [Concomitant]
     Active Substance: LORAZEPAM
  12. AVODART [Suspect]
     Active Substance: DUTASTERIDE
     Dosage: .5 MG, BID
  13. DOXAZOSIN [Concomitant]
     Active Substance: DOXAZOSIN\DOXAZOSIN MESYLATE
  14. SAW PALMETTO [Concomitant]
     Active Substance: SAW PALMETTO
  15. TRICOR [Concomitant]
     Active Substance: FENOFIBRATE
  16. CRANBERRY. [Concomitant]
     Active Substance: CRANBERRY
  17. CARISOPRODOL. [Concomitant]
     Active Substance: CARISOPRODOL
  18. DIAZEPAM. [Concomitant]
     Active Substance: DIAZEPAM
  19. BICALUTAMIDE. [Concomitant]
     Active Substance: BICALUTAMIDE
  20. SULFAMETHOXAZOLE-TRIMETHOPRIM (SMZ) [Concomitant]
     Active Substance: SULFAMETHOXAZOLE\TRIMETHOPRIM
  21. HYDROCHLOROTHIAZIDE. [Concomitant]
     Active Substance: HYDROCHLOROTHIAZIDE
  22. SYNTHROID [Concomitant]
     Active Substance: LEVOTHYROXINE SODIUM
  23. LORTAB [Concomitant]
     Active Substance: ACETAMINOPHEN\HYDROCODONE BITARTRATE
  24. OSTEO BI-FLEX [Concomitant]
     Active Substance: CHONDROITIN SULFATE A\GLUCOSAMINE
  25. PIOGLITAZONE. [Concomitant]
     Active Substance: PIOGLITAZONE
  26. LEVOFLOXACIN. [Suspect]
     Active Substance: LEVOFLOXACIN
     Indication: DYSURIA
     Dosage: UNK, U
  27. AMITRIPTYLINE [Concomitant]
     Active Substance: AMITRIPTYLINE
  28. SOMA [Concomitant]
     Active Substance: CARISOPRODOL
  29. ASPIRIN. [Concomitant]
     Active Substance: ASPIRIN
  30. VITAMIN D [Concomitant]
     Active Substance: CHOLECALCIFEROL
  31. GLUCOSAMINE [Concomitant]
     Active Substance: GLUCOSAMINE
  32. AMOX TR-K CLV [Concomitant]
     Active Substance: AMOXICILLIN\CLAVULANATE POTASSIUM
  33. HYDROCODONE BITARTRATE AND ACETAMINOPHEN [Concomitant]
     Active Substance: ACETAMINOPHEN\HYDROCODONE BITARTRATE
  34. PHENAZOPYRIDINE. [Concomitant]
     Active Substance: PHENAZOPYRIDINE
  35. SIMVASTATIN. [Concomitant]
     Active Substance: SIMVASTATIN
  36. LISINOPRIL. [Concomitant]
     Active Substance: LISINOPRIL
  37. TUMS [Concomitant]
     Active Substance: CALCIUM CARBONATE
  38. CIPROFLOXACIN. [Concomitant]
     Active Substance: CIPROFLOXACIN
  39. DICLOFENAC [Concomitant]
     Active Substance: DICLOFENAC
  40. VITAMIN C [Concomitant]
     Active Substance: ASCORBIC ACID
  41. VITAMIN E [Concomitant]
     Active Substance: .ALPHA.-TOCOPHEROL
  42. MULTIVITAMIN [Concomitant]
     Active Substance: VITAMINS

REACTIONS (19)
  - Prostate cancer [Unknown]
  - Renal cancer [Not Recovered/Not Resolved]
  - Neoplasm malignant [Unknown]
  - Neoplasm prostate [Not Recovered/Not Resolved]
  - Knee operation [Unknown]
  - Escherichia infection [Recovered/Resolved]
  - Constipation [Unknown]
  - Renal disorder [Not Recovered/Not Resolved]
  - Prostatic disorder [Unknown]
  - Dysuria [Unknown]
  - Prescribed overdose [Unknown]
  - Tooth extraction [Unknown]
  - Prostate ablation [Unknown]
  - Prostatic specific antigen increased [Not Recovered/Not Resolved]
  - Urinary tract infection [Not Recovered/Not Resolved]
  - Pollakiuria [Not Recovered/Not Resolved]
  - Enema administration [Unknown]
  - Cataract [Unknown]
  - Biopsy [Recovered/Resolved]

NARRATIVE: CASE EVENT DATE: 2014
